FAERS Safety Report 4982176-0 (Version None)
Quarter: 2006Q2

REPORT INFORMATION
  Report Type: 
  Country: None (occurrence: None)
  Receive Date: 20060425
  Receipt Date: 20051107
  Transmission Date: 20061013
  Serious: Yes (Hospitalization, Disabling)
  Sender: FDA-Public Use
  Company Number: US-MERCK-0511USA01628

PATIENT
  Age: 36 Year
  Sex: Female
  Weight: 87 kg

DRUGS (4)
  1. VIOXX [Suspect]
     Indication: ARTHRALGIA
     Route: 048
     Dates: start: 20020424, end: 20041201
  2. VIOXX [Suspect]
     Route: 048
     Dates: start: 20020424, end: 20041201
  3. VIOXX [Suspect]
     Indication: JOINT SWELLING
     Route: 048
     Dates: start: 20020424, end: 20041201
  4. VIOXX [Suspect]
     Route: 048
     Dates: start: 20020424, end: 20041201

REACTIONS (2)
  - CEREBROVASCULAR ACCIDENT [None]
  - DEPRESSION [None]
